FAERS Safety Report 13940749 (Version 1)
Quarter: 2017Q3

REPORT INFORMATION
  Report Type: Spontaneous
  Country: US (occurrence: US)
  Receive Date: 20170906
  Receipt Date: 20170906
  Transmission Date: 20171127
  Serious: No
  Sender: FDA-Public Use
  Company Number: US-009507513-1708USA010638

PATIENT
  Age: 35 Year
  Sex: Female

DRUGS (5)
  1. FLUCONAZOLE. [Concomitant]
     Active Substance: FLUCONAZOLE
  2. AVIBACTAM SODIUM (+) CEFTAZIDIME [Concomitant]
     Indication: PROPHYLAXIS
     Dosage: 1.25 G  Q8H
     Route: 042
  3. AZTREONAM. [Concomitant]
     Active Substance: AZTREONAM
     Indication: PROPHYLAXIS
     Dosage: 1 G, Q8H
     Route: 042
  4. METRONIDAZOLE. [Concomitant]
     Active Substance: METRONIDAZOLE
     Dosage: UNK
  5. CUBICIN [Suspect]
     Active Substance: DAPTOMYCIN
     Indication: ENTEROCOCCAL INFECTION
     Dosage: UNK

REACTIONS (1)
  - Product use in unapproved indication [Unknown]
